FAERS Safety Report 7986974-0 (Version None)
Quarter: 2011Q4

REPORT INFORMATION
  Report Type: 
  Country: None (occurrence: None)
  Receive Date: 20111216
  Receipt Date: 20110305
  Transmission Date: 20120403
  Serious: No
  Sender: FDA-Public Use
  Company Number: US-BRISTOL-MYERS SQUIBB COMPANY-15594880

PATIENT
  Age: 17 Year
  Sex: Male
  Weight: 79 kg

DRUGS (3)
  1. ABILIFY [Suspect]
     Route: 048
  2. DEPAKOTE [Suspect]
     Indication: AUTISM SPECTRUM DISORDER
  3. MIRTAZAPINE [Suspect]
     Indication: AUTISM SPECTRUM DISORDER

REACTIONS (1)
  - PRIAPISM [None]
